APPROVED DRUG PRODUCT: KETOPROFEN
Active Ingredient: KETOPROFEN
Strength: 50MG
Dosage Form/Route: CAPSULE;ORAL
Application: A073516 | Product #001 | TE Code: AB
Applicant: TEVA PHARMACEUTICALS USA INC
Approved: Dec 22, 1992 | RLD: No | RS: No | Type: RX